FAERS Safety Report 4418069-7 (Version None)
Quarter: 2004Q3

REPORT INFORMATION
  Report Type: 
  Country: None (occurrence: None)
  Receive Date: 20040803
  Receipt Date: 20040302
  Transmission Date: 20050211
  Serious: Yes (Death, Hospitalization)
  Sender: FDA-Public Use
  Company Number: US-JNJFOC-20040201878

PATIENT
  Age: 66 Year
  Sex: Male
  Weight: 131.5431 kg

DRUGS (1)
  1. DITROPAN [Suspect]
     Indication: URINARY INCONTINENCE
     Dosage: 5 MG, ORAL
     Route: 048

REACTIONS (1)
  - DEATH [None]
